FAERS Safety Report 9678177 (Version 2)
Quarter: 2014Q1

REPORT INFORMATION
  Report Type: Spontaneous
  Country: US (occurrence: US)
  Receive Date: 20131108
  Receipt Date: 20140103
  Transmission Date: 20141002
  Serious: No
  Sender: FDA-Public Use
  Company Number: US-009507513-1311USA002666

PATIENT
  Age: 62 Year
  Sex: Female
  Weight: 53.52 kg

DRUGS (5)
  1. MIRALAX [Suspect]
     Indication: CONSTIPATION
     Dosage: 17 G, BID
     Route: 048
     Dates: start: 20131115, end: 20131116
  2. MIRALAX [Suspect]
     Dosage: 17 G, QD
     Route: 048
  3. LISINOPRIL [Concomitant]
     Indication: HYPERTENSION
     Dosage: UNK, UNKNOWN
  4. PERCOCET [Concomitant]
     Indication: PAIN
     Dosage: UNK, UNKNOWN
  5. METOPROLOL [Concomitant]
     Indication: HYPERTENSION
     Dosage: UNK, UNKNOWN

REACTIONS (5)
  - Abdominal pain [Recovered/Resolved]
  - Faecal incontinence [Unknown]
  - Gastric disorder [Unknown]
  - Overdose [Unknown]
  - Drug effect delayed [Unknown]
